FAERS Safety Report 23918363 (Version 5)
Quarter: 2024Q4

REPORT INFORMATION
  Report Type: Spontaneous
  Country: US (occurrence: US)
  Receive Date: 20240530
  Receipt Date: 20241219
  Transmission Date: 20250114
  Serious: Yes (Other)
  Sender: NOVARTIS
  Company Number: US-002147023-NVSC2024US111385

PATIENT
  Sex: Female

DRUGS (4)
  1. COSENTYX [Suspect]
     Active Substance: SECUKINUMAB
     Indication: Product used for unknown indication
     Dosage: UNK
     Route: 065
  2. COSENTYX [Suspect]
     Active Substance: SECUKINUMAB
     Dosage: UNK, Q2W
     Route: 065
  3. TIRZEPATIDE [Concomitant]
     Active Substance: TIRZEPATIDE
     Indication: Product used for unknown indication
     Dosage: UNK
     Route: 065
  4. ZEPBOUND [Concomitant]
     Active Substance: TIRZEPATIDE
     Indication: Product used for unknown indication
     Dosage: UNK
     Route: 065

REACTIONS (11)
  - Systemic lupus erythematosus [Unknown]
  - Autoimmune disorder [Unknown]
  - Pain [Unknown]
  - Fatigue [Unknown]
  - Subcutaneous abscess [Unknown]
  - Pustule [Unknown]
  - Impaired healing [Unknown]
  - Wound complication [Unknown]
  - Psoriasis [Not Recovered/Not Resolved]
  - Neutrophil count abnormal [Unknown]
  - Therapeutic response decreased [Unknown]
